FAERS Safety Report 6479490-9 (Version None)
Quarter: 2009Q4

REPORT INFORMATION
  Report Type: 
  Country: None (occurrence: None)
  Receive Date: 20091207
  Receipt Date: 20091207
  Transmission Date: 20100525
  Serious: Yes (Hospitalization)
  Sender: FDA-Public Use
  Company Number: None

PATIENT
  Age: 39 Year
  Sex: Male
  Weight: 136.0791 kg

DRUGS (1)
  1. CLOZAPINE [Suspect]
     Dosage: 25 MG DAILY

REACTIONS (3)
  - GASTROINTESTINAL PAIN [None]
  - PANCREATITIS [None]
  - PYREXIA [None]
